FAERS Safety Report 25860319 (Version 1)
Quarter: 2025Q3

REPORT INFORMATION
  Report Type: Report from Study
  Country: US (occurrence: US)
  Receive Date: 20250929
  Receipt Date: 20250929
  Transmission Date: 20251021
  Serious: Yes (Other)
  Sender: ABBVIE
  Company Number: US-ABBVIE-6474478

PATIENT
  Age: 39 Year
  Sex: Female

DRUGS (1)
  1. SKYRIZI [Suspect]
     Active Substance: RISANKIZUMAB-RZAA
     Indication: Psoriasis
     Route: 058
     Dates: start: 20221221

REACTIONS (3)
  - Abdominoplasty [Recovering/Resolving]
  - Liposuction [Recovering/Resolving]
  - Mammoplasty [Recovering/Resolving]

NARRATIVE: CASE EVENT DATE: 20250601
